FAERS Safety Report 8905404 (Version 1)
Quarter: 2012Q4

REPORT INFORMATION
  Report Type: 
  Country: US (occurrence: US)
  Receive Date: 20121109
  Receipt Date: 20121109
  Transmission Date: 20130627
  Serious: Yes (Other)
  Sender: FDA-Public Use
  Company Number: US-PFIZER INC-2012280569

PATIENT
  Age: 56 Year
  Sex: Female
  Weight: 81.63 kg

DRUGS (2)
  1. LIPITOR [Suspect]
     Indication: HIGH CHOLESTEROL
     Dosage: 10 mg, 1x/day
     Route: 048
     Dates: start: 201112, end: 201201
  2. LIPITOR [Suspect]
     Dosage: 10 mg, 1x/day
     Route: 048
     Dates: start: 201202, end: 20121101

REACTIONS (3)
  - Varicose vein [Recovering/Resolving]
  - Pain in extremity [Recovering/Resolving]
  - Asthenia [Recovering/Resolving]
